FAERS Safety Report 9496272 (Version 1)
Quarter: 2013Q3

REPORT INFORMATION
  Report Type: Report from Study
  Country: US (occurrence: US)
  Receive Date: 20130904
  Receipt Date: 20130904
  Transmission Date: 20140515
  Serious: Yes (Other)
  Sender: FDA-Public Use
  Company Number: US-ASTRAZENECA-2013SE63710

PATIENT
  Age: 75 Year
  Sex: Male
  Weight: 90.7 kg

DRUGS (8)
  1. PRILOSEC [Suspect]
     Indication: GASTRIC PH DECREASED
     Route: 048
     Dates: end: 201308
  2. CRESTOR [Suspect]
     Route: 048
     Dates: start: 2000, end: 2001
  3. HYDROCHLOROTHIAZIDE [Suspect]
     Route: 065
  4. PLAVIX [Suspect]
     Route: 065
  5. NORVASC [Concomitant]
  6. PERCODAN [Concomitant]
     Dosage: DAILY
  7. BENECAR [Concomitant]
  8. MEVACOR [Concomitant]

REACTIONS (13)
  - Hiatus hernia [Unknown]
  - Abdominal pain upper [Not Recovered/Not Resolved]
  - Headache [Not Recovered/Not Resolved]
  - Abdominal discomfort [Not Recovered/Not Resolved]
  - Flatulence [Not Recovered/Not Resolved]
  - Pain in extremity [Not Recovered/Not Resolved]
  - Dyspnoea [Not Recovered/Not Resolved]
  - Body height decreased [Not Recovered/Not Resolved]
  - Pruritus genital [Recovering/Resolving]
  - Abdominal distension [Not Recovered/Not Resolved]
  - Constipation [Not Recovered/Not Resolved]
  - Drug ineffective [Not Recovered/Not Resolved]
  - Intentional drug misuse [Unknown]
